FAERS Safety Report 13011522 (Version 3)
Quarter: 2017Q1

REPORT INFORMATION
  Report Type: Spontaneous
  Country: DE (occurrence: DE)
  Receive Date: 20161209
  Receipt Date: 20170208
  Transmission Date: 20170428
  Serious: Yes (Hospitalization, Other)
  Sender: FDA-Public Use
  Company Number: DE-ROCHE-1864798

PATIENT
  Age: 49 Year
  Sex: Female

DRUGS (4)
  1. THIOTEPA. [Suspect]
     Active Substance: THIOTEPA
     Indication: STEM CELL TRANSPLANT
     Dosage: ON DAY 6 AND DAY 5 PRIOR TO THE TRANSPLANT
     Route: 065
  2. RITUXIMAB [Suspect]
     Active Substance: RITUXIMAB
     Indication: STEM CELL TRANSPLANT
     Dosage: ON DAY 9 AND DAY 1 PRIOR TO THE TRANSPLANT
     Route: 042
  3. TREOSULFAN [Suspect]
     Active Substance: TREOSULFAN
     Indication: STEM CELL TRANSPLANT
     Dosage: 10 G/M2, ON DAY 8 AND DAY 7 PRIOR TO THE TRANSPLANT
     Route: 065
  4. FLUDARABINE [Suspect]
     Active Substance: FLUDARABINE PHOSPHATE
     Indication: STEM CELL TRANSPLANT
     Dosage: ON DAY 5 TO DAY 2 PRIOR TO THE TRANSPLANT
     Route: 065

REACTIONS (6)
  - Off label use [Unknown]
  - Mucosal inflammation [Recovering/Resolving]
  - Hepatotoxicity [Recovering/Resolving]
  - Product use issue [Unknown]
  - Graft versus host disease in skin [Recovering/Resolving]
  - Graft versus host disease in gastrointestinal tract [Recovering/Resolving]
